FAERS Safety Report 6282902-7 (Version None)
Quarter: 2009Q3

REPORT INFORMATION
  Report Type: 
  Country: None (occurrence: None)
  Receive Date: 20090724
  Receipt Date: 20090715
  Transmission Date: 20100115
  Serious: Yes (Death, Hospitalization, Other)
  Sender: FDA-Public Use
  Company Number: US-AMGEN-STX352861

PATIENT
  Age: 70 Year
  Sex: Male
  Weight: 54.5 kg

DRUGS (4)
  1. SENSIPAR [Suspect]
     Indication: HYPERPARATHYROIDISM PRIMARY
     Dates: start: 20090617, end: 20090702
  2. ZOMETA [Concomitant]
  3. LASIX [Concomitant]
  4. PAMIDRONATE DISODIUM [Concomitant]

REACTIONS (10)
  - BLOOD PARATHYROID HORMONE INCREASED [None]
  - FLUID OVERLOAD [None]
  - GENERAL PHYSICAL HEALTH DETERIORATION [None]
  - HEPATIC MASS [None]
  - HYPOPHAGIA [None]
  - HYPOXIA [None]
  - MALAISE [None]
  - PARATHYROID TUMOUR MALIGNANT [None]
  - PNEUMONIA ASPIRATION [None]
  - SEPSIS [None]
